FAERS Safety Report 19968723 (Version 3)
Quarter: 2021Q4

REPORT INFORMATION
  Report Type: Report from Study
  Country: US (occurrence: US)
  Receive Date: 20211019
  Receipt Date: 20211207
  Transmission Date: 20220304
  Serious: No
  Sender: FDA-Public Use
  Company Number: US-NOVARTISTESTPH-NVSC2021US237800

PATIENT
  Sex: Male

DRUGS (1)
  1. ENTRESTO [Suspect]
     Active Substance: SACUBITRIL\VALSARTAN
     Indication: Product used for unknown indication
     Dosage: 1 DF, BID(24/26 MG)
     Route: 048
     Dates: start: 20210923

REACTIONS (9)
  - Vision blurred [Unknown]
  - Nasopharyngitis [Unknown]
  - Oropharyngeal pain [Unknown]
  - Dizziness [Unknown]
  - Asthenia [Unknown]
  - Cough [Unknown]
  - Heart rate decreased [Unknown]
  - Hypotension [Unknown]
  - Product dose omission issue [Unknown]
